FAERS Safety Report 8570202-1 (Version None)
Quarter: 2012Q3

REPORT INFORMATION
  Report Type: 
  Country: None (occurrence: None)
  Receive Date: 20120803
  Receipt Date: 20120801
  Transmission Date: 20120928
  Serious: Yes (Death, Hospitalization)
  Sender: FDA-Public Use
  Company Number: FR-B.I. PHARMACEUTICALS,INC./RIDGEFIELD-2012-FF-00877FF

PATIENT
  Age: 95 Year
  Sex: Male

DRUGS (2)
  1. PRADAXA [Suspect]
     Indication: ATRIAL FIBRILLATION
     Dosage: 220 MG
     Route: 048
  2. ASPIRIN [Suspect]
     Route: 048

REACTIONS (3)
  - GASTRITIS EROSIVE [None]
  - SHOCK HAEMORRHAGIC [None]
  - GASTRIC HAEMORRHAGE [None]
